FAERS Safety Report 18957304 (Version 1)
Quarter: 2021Q1

REPORT INFORMATION
  Report Type: Spontaneous
  Country: US (occurrence: US)
  Receive Date: 20210301
  Receipt Date: 20210301
  Transmission Date: 20210420
  Serious: Yes (Other)
  Sender: FDA-Public Use
  Company Number: None

PATIENT
  Age: 59 Year
  Sex: Female
  Weight: 69.44 kg

DRUGS (21)
  1. MAGNESIUM CHLORIDE. [Concomitant]
     Active Substance: MAGNESIUM CHLORIDE
  2. ALPRAZOLAM. [Concomitant]
     Active Substance: ALPRAZOLAM
  3. OSCAL [Concomitant]
     Active Substance: CALCIUM CARBONATE
  4. NAPROXEN. [Concomitant]
     Active Substance: NAPROXEN
  5. DESOWEN [Concomitant]
     Active Substance: DESONIDE
  6. XGEVA [Concomitant]
     Active Substance: DENOSUMAB
  7. CHOLECALCIFEROL [Concomitant]
     Active Substance: CHOLECALCIFEROL
  8. LORATADINE. [Concomitant]
     Active Substance: LORATADINE
  9. CLOBETASOL [Concomitant]
     Active Substance: CLOBETASOL
  10. CALTRATE [Concomitant]
     Active Substance: CALCIUM CARBONATE
  11. LEVOTHYROXINE. [Concomitant]
     Active Substance: LEVOTHYROXINE
  12. MOMETASONE [Concomitant]
     Active Substance: MOMETASONE
  13. CAPECITABINE. [Suspect]
     Active Substance: CAPECITABINE
     Indication: BREAST CANCER
     Route: 048
     Dates: start: 20210212
  14. MAGIC MOUTHWASH [Concomitant]
     Active Substance: DIPHENHYDRAMINE HYDROCHLORIDE\LIDOCAINE HYDROCHLORIDE\NYSTATIN
  15. METHYLCELLULOSE [Concomitant]
     Active Substance: METHYLCELLULOSES
  16. TRIAMCINOLONE [Concomitant]
     Active Substance: TRIAMCINOLONE
  17. PROCHLORPERAZINE. [Concomitant]
     Active Substance: PROCHLORPERAZINE
  18. PROAIR HFA [Concomitant]
     Active Substance: ALBUTEROL SULFATE
  19. OXYCODONE [Concomitant]
     Active Substance: OXYCODONE
  20. OMEPRAZOLE. [Concomitant]
     Active Substance: OMEPRAZOLE
  21. MULTIVITAMIN [Concomitant]
     Active Substance: VITAMINS

REACTIONS (3)
  - Vaginal mucosal blistering [None]
  - Oral mucosal blistering [None]
  - Blister [None]

NARRATIVE: CASE EVENT DATE: 20210301
